FAERS Safety Report 7983765 (Version 6)
Quarter: 2013Q2

REPORT INFORMATION
  Report Type: Report from Study
  Country: US (occurrence: US)
  Receive Date: 20110609
  Receipt Date: 20130619
  Transmission Date: 20140414
  Serious: Yes (Hospitalization)
  Sender: FDA-Public Use
  Company Number: PHHO2011US09515

PATIENT
  Age: 67 Year
  Sex: Male
  Weight: 140 kg

DRUGS (3)
  1. AFINITOR [Suspect]
     Indication: METASTATIC RENAL CELL CARCINOMA
     Dosage: 10 MG, UNK
     Route: 048
     Dates: start: 20100422, end: 20110523
  2. DIURETICS [Suspect]
     Indication: CARDIAC FAILURE CONGESTIVE
  3. KEFLEX [Concomitant]
     Indication: LOCALISED INFECTION

REACTIONS (6)
  - Ventricular dysfunction [Recovering/Resolving]
  - Atrial fibrillation [Recovered/Resolved with Sequelae]
  - Herpes zoster [Recovered/Resolved]
  - Cardiac failure congestive [Unknown]
  - Dyspnoea [Not Recovered/Not Resolved]
  - Renal failure acute [Recovering/Resolving]
